FAERS Safety Report 10793263 (Version 2)
Quarter: 2015Q1

REPORT INFORMATION
  Report Type: Spontaneous
  Country: US (occurrence: US)
  Receive Date: 20150213
  Receipt Date: 20150319
  Transmission Date: 20150721
  Serious: Yes (Other)
  Sender: FDA-Public Use
  Company Number: US-BAYER-2015-021831

PATIENT
  Age: 82 Year
  Sex: Female
  Weight: 65.76 kg

DRUGS (2)
  1. ALEVE PM [Suspect]
     Active Substance: DIPHENHYDRAMINE HYDROCHLORIDE\NAPROXEN SODIUM
     Indication: ANALGESIC THERAPY
     Dosage: 2 DF, QD
     Route: 048
     Dates: start: 201501, end: 201502
  2. ALEVE [Suspect]
     Active Substance: NAPROXEN SODIUM
     Indication: FRACTURE PAIN
     Dosage: UNK, QD
     Route: 048
     Dates: start: 201501, end: 201502

REACTIONS (4)
  - Hepatic failure [Recovering/Resolving]
  - Blood test abnormal [Recovered/Resolved]
  - Incorrect drug administration duration [Unknown]
  - Renal failure [Not Recovered/Not Resolved]

NARRATIVE: CASE EVENT DATE: 201501
